FAERS Safety Report 14200102 (Version 2)
Quarter: 2018Q1

REPORT INFORMATION
  Report Type: Report from Study
  Country: US (occurrence: US)
  Receive Date: 20171117
  Receipt Date: 20180117
  Transmission Date: 20180508
  Serious: Yes (Hospitalization, Other)
  Sender: FDA-Public Use
  Company Number: US-TESARO, INC-US-2017TSO03898

PATIENT

DRUGS (1)
  1. ZEJULA [Suspect]
     Active Substance: NIRAPARIB
     Indication: DUCTAL ADENOCARCINOMA OF PANCREAS
     Dosage: 300 MG, QD
     Route: 048
     Dates: start: 20171019

REACTIONS (6)
  - Heart rate abnormal [Not Recovered/Not Resolved]
  - Product use in unapproved indication [Unknown]
  - Bile duct obstruction [Unknown]
  - Clostridium difficile infection [Unknown]
  - Atrial fibrillation [Not Recovered/Not Resolved]
  - Mobility decreased [Unknown]

NARRATIVE: CASE EVENT DATE: 201710
